FAERS Safety Report 7146069-5 (Version None)
Quarter: 2010Q4

REPORT INFORMATION
  Report Type: 
  Country: None (occurrence: None)
  Receive Date: 20101123
  Receipt Date: 20101110
  Transmission Date: 20110411
  Serious: Yes (Hospitalization, Other)
  Sender: FDA-Public Use
  Company Number: JPI-P-012984

PATIENT
  Age: 64 Year
  Sex: Female
  Weight: 54.4316 kg

DRUGS (12)
  1. XYREM [Suspect]
     Indication: INSOMNIA
     Dosage: 4.5 GM (2.25 GM,2 IN 1 D),ORAL ; 7.5 GM (3.75 GM,2 I N1 D),ORAL
     Route: 048
     Dates: start: 20090601, end: 20090701
  2. XYREM [Suspect]
     Indication: INSOMNIA
     Dosage: 4.5 GM (2.25 GM,2 IN 1 D),ORAL ; 7.5 GM (3.75 GM,2 I N1 D),ORAL
     Route: 048
     Dates: start: 20090714
  3. OXYCODONE AND ACETAMINOPHEN [Concomitant]
  4. GABAPENTIN [Concomitant]
  5. METHENAMINE HIPPURATE [Concomitant]
  6. PAROXETINE HYDROCHLORIDE [Concomitant]
  7. OMEPRAZOLE AND SODIUM BICARBONATE [Concomitant]
  8. DIAZEPAM [Concomitant]
  9. CEPHALEXIN [Concomitant]
  10. TRIMETHOPRIM [Concomitant]
  11. DOMPERIDONE [Concomitant]
  12. LAXATIVES [Concomitant]

REACTIONS (8)
  - CONSTIPATION [None]
  - DIARRHOEA [None]
  - GASTROINTESTINAL MOTILITY DISORDER [None]
  - INSOMNIA [None]
  - IRRITABLE BOWEL SYNDROME [None]
  - PARAESTHESIA ORAL [None]
  - PARATHYROID DISORDER [None]
  - RENAL DISORDER [None]
